FAERS Safety Report 8089458-7 (Version None)
Quarter: 2012Q1

REPORT INFORMATION
  Report Type: 
  Country: None (occurrence: None)
  Receive Date: 20120128
  Receipt Date: 20110625
  Transmission Date: 20120608
  Serious: No
  Sender: FDA-Public Use
  Company Number: US-ABBOTT-11P-163-0834974-00

PATIENT
  Age: 21 Year
  Sex: Male

DRUGS (1)
  1. HUMIRA [Suspect]
     Indication: ANKYLOSING SPONDYLITIS
     Dates: start: 20110211

REACTIONS (5)
  - INGROWING NAIL [None]
  - PURULENT DISCHARGE [None]
  - STAPHYLOCOCCAL INFECTION [None]
  - LOCAL SWELLING [None]
  - PAIN IN EXTREMITY [None]
